FAERS Safety Report 9344356 (Version 1)
Quarter: 2013Q2

REPORT INFORMATION
  Report Type: Spontaneous
  Country: JP (occurrence: JP)
  Receive Date: 20130612
  Receipt Date: 20130612
  Transmission Date: 20140414
  Serious: Yes (Death)
  Sender: FDA-Public Use
  Company Number: JP-ASTELLAS-2013JP006584

PATIENT
  Age: 40 Year
  Sex: Male

DRUGS (10)
  1. PROGRAF [Suspect]
     Indication: INTERSTITIAL LUNG DISEASE
     Dosage: 1 MG, BID
     Route: 048
     Dates: start: 20120718, end: 201208
  2. PREDNISOLONE [Concomitant]
     Indication: INTERSTITIAL LUNG DISEASE
     Dosage: 60 MG, UNKNOWN/D
     Route: 065
     Dates: start: 20120621
  3. PREDNISOLONE [Concomitant]
     Dosage: 50 MG, UNKNOWN/D
     Route: 065
     Dates: start: 20120723
  4. CICLOSPORIN [Concomitant]
     Indication: INTERSTITIAL LUNG DISEASE
     Dosage: 100 MG, BID
     Route: 048
     Dates: start: 20120621, end: 201207
  5. METHYLPREDNISOLONE [Concomitant]
     Dosage: 1000 MG, UNKNOWN/D
     Route: 065
     Dates: start: 20120705, end: 20120707
  6. METHYLPREDNISOLONE [Concomitant]
     Dosage: 1000 MG, UNKNOWN/D
     Route: 065
     Dates: start: 20120720, end: 20120722
  7. METHYLPREDNISOLONE [Concomitant]
     Dosage: 1000 MG, UNKNOWN/D
     Route: 065
     Dates: start: 2012
  8. CYCLOPHOSPHAMIDE [Concomitant]
     Indication: INTERSTITIAL LUNG DISEASE
     Dosage: 500 MG, UNKNOWN/D
     Route: 042
     Dates: start: 20120705, end: 201207
  9. CYCLOPHOSPHAMIDE [Concomitant]
     Dosage: 750 MG, UNKNOWN/D
     Route: 042
     Dates: start: 20120728
  10. IMMUNOGLOBULIN                     /00025201/ [Concomitant]
     Dosage: UNK
     Route: 042
     Dates: start: 20120714, end: 20120717

REACTIONS (2)
  - Drug ineffective for unapproved indication [Unknown]
  - Interstitial lung disease [Fatal]
